FAERS Safety Report 10079385 (Version 2)
Quarter: 2014Q2

REPORT INFORMATION
  Report Type: Spontaneous
  Country: DE (occurrence: DE)
  Receive Date: 20140415
  Receipt Date: 20140423
  Transmission Date: 20141212
  Serious: Yes (Hospitalization, Other)
  Sender: FDA-Public Use
  Company Number: PHHY2014DE045211

PATIENT
  Age: 13 Year
  Sex: Female
  Weight: 39.6 kg

DRUGS (4)
  1. EVEROLIMUS [Suspect]
     Indication: ASTROCYTOMA, LOW GRADE
     Dosage: 2.5 MG, UNK
     Dates: start: 20120115
  2. EVEROLIMUS [Suspect]
     Dosage: 5 MG, UNK
     Dates: start: 20120208
  3. CARBAMAZEPINE [Concomitant]
     Dosage: 1000 MG, DAILY
     Dates: start: 200904
  4. SULTHIAME [Concomitant]
     Dosage: 150 MG, DAILY
     Dates: start: 200904

REACTIONS (8)
  - Status epilepticus [Recovered/Resolved]
  - Partial seizures [Recovered/Resolved]
  - Generalised tonic-clonic seizure [Recovered/Resolved]
  - Loss of consciousness [Unknown]
  - Blister [Unknown]
  - Sleep disorder [Unknown]
  - Drug level decreased [Unknown]
  - Mucosal inflammation [Unknown]
